FAERS Safety Report 12913286 (Version 1)
Quarter: 2016Q4

REPORT INFORMATION
  Report Type: Spontaneous
  Country: US (occurrence: US)
  Receive Date: 20161104
  Receipt Date: 20161104
  Transmission Date: 20170207
  Serious: Yes (Other)
  Sender: FDA-Public Use
  Company Number: US-BAYER-2016-211254

PATIENT
  Age: 103 Year
  Sex: Male

DRUGS (2)
  1. PHILLIPS^ CHEWABLE TABLETS MINT [Suspect]
     Active Substance: MAGNESIUM HYDROXIDE
     Indication: GASTROINTESTINAL DISORDER
     Dosage: 3-4 TABLETS, QD
  2. PHILLIPS^ CHEWABLE TABLETS MINT [Suspect]
     Active Substance: MAGNESIUM HYDROXIDE
     Indication: CONSTIPATION

REACTIONS (2)
  - Drug dependence [Not Recovered/Not Resolved]
  - Product use issue [Unknown]
